FAERS Safety Report 7699020-3 (Version None)
Quarter: 2011Q3

REPORT INFORMATION
  Report Type: 
  Country: None (occurrence: None)
  Receive Date: 20110819
  Receipt Date: 20110810
  Transmission Date: 20111222
  Serious: Yes (Other)
  Sender: FDA-Public Use
  Company Number: PHHY2011CA73352

PATIENT
  Age: 70 Year
  Sex: Male

DRUGS (4)
  1. WARFARIN SODIUM [Interacting]
  2. ETHAMBUTOL HYDROCHLORIDE [Concomitant]
     Indication: LUNG INFECTION
     Dosage: UNK
     Dates: start: 20090801
  3. RIFAMPICIN [Suspect]
     Indication: LUNG INFECTION
     Dosage: UNK
     Dates: start: 20090801
  4. CLARITHROMYCIN [Concomitant]
     Indication: LUNG INFECTION
     Dosage: UNK
     Dates: start: 20090801

REACTIONS (2)
  - DRUG INTERACTION [None]
  - INTERNATIONAL NORMALISED RATIO INCREASED [None]
